FAERS Safety Report 9757896 (Version 1)
Quarter: 2013Q4

REPORT INFORMATION
  Report Type: Spontaneous
  Country: US (occurrence: US)
  Receive Date: 20131216
  Receipt Date: 20131216
  Transmission Date: 20140711
  Serious: Yes (Other)
  Sender: FDA-Public Use
  Company Number: US-ROCHE-1319546

PATIENT
  Sex: Male

DRUGS (9)
  1. ZELBORAF [Suspect]
     Indication: PRODUCT USED FOR UNKNOWN INDICATION
     Route: 065
     Dates: start: 20131003
  2. ASPIRIN [Concomitant]
  3. ATORVASTATIN [Concomitant]
  4. CARVEDILOL [Concomitant]
     Route: 065
  5. CLOPIDOGREL [Concomitant]
  6. FINASTERIDE [Concomitant]
  7. HYDROMORPHONE [Concomitant]
  8. ONDANSETRON [Concomitant]
  9. PROCHLORPERAZINE [Concomitant]

REACTIONS (2)
  - Lip swelling [Unknown]
  - Local swelling [Unknown]
